FAERS Safety Report 7085719-9 (Version None)
Quarter: 2010Q4

REPORT INFORMATION
  Report Type: 
  Country: None (occurrence: None)
  Receive Date: 20101105
  Receipt Date: 20101027
  Transmission Date: 20110411
  Serious: Yes (Other)
  Sender: FDA-Public Use
  Company Number: US-PFIZER INC-2010137128

PATIENT
  Sex: Male
  Weight: 79.365 kg

DRUGS (3)
  1. CHANTIX [Suspect]
     Indication: SMOKING CESSATION THERAPY
     Dosage: 0.5 MG, 1X/DAY
     Route: 048
     Dates: start: 20101024
  2. BIAXIN [Concomitant]
     Dosage: 500 MG, 2X/DAY
  3. PREDNISONE [Concomitant]
     Dosage: 4 MG, UNK

REACTIONS (3)
  - HALLUCINATION, VISUAL [None]
  - TONGUE EXFOLIATION [None]
  - TONGUE ULCERATION [None]
